FAERS Safety Report 9513228 (Version 1)
Quarter: 2013Q1

REPORT INFORMATION
  Report Type: Spontaneous
  Country: US (occurrence: None)
  Receive Date: 20130305
  Receipt Date: 20130305
  Transmission Date: 20140127
  Serious: Yes (Other)
  Sender: FDA-Public Use
  Company Number: 163-21880-12102528

PATIENT
  Age: 64 Year
  Sex: Female
  Weight: 56.7 kg

DRUGS (2)
  1. REVLIMID (LENALIDOMIDE) (CAPSULES) [Suspect]
     Indication: PLASMA CELL MYELOMA
     Dosage: 25 MG, 21 IN 21 D, PO
     Route: 048
     Dates: start: 20111126
  2. VITAMIN B COMPLEX (B-KOMPLEX ^LECIVA^) (UNKNOWN) [Concomitant]

REACTIONS (1)
  - Fungal infection [None]
